FAERS Safety Report 5311724-6 (Version None)
Quarter: 2007Q1

REPORT INFORMATION
  Report Type: 
  Country: None (occurrence: None)
  Receive Date: 20070201
  Receipt Date: 20061003
  Transmission Date: 20070707
  Serious: No
  Sender: FDA-Public Use
  Company Number: 257485

PATIENT
  Age: 62 Year
  Sex: Male
  Weight: 74.8 kg

DRUGS (3)
  1. LEVEMIR [Suspect]
     Indication: INSULIN-REQUIRING TYPE II DIABETES MELLITUS
     Dosage: 10 U, QD, SUBCUTANEOUS
     Route: 058
     Dates: start: 20060604
  2. METFORMIN HCL [Concomitant]
  3. ACTOS [Concomitant]

REACTIONS (1)
  - BLOOD GLUCOSE FLUCTUATION [None]
